FAERS Safety Report 10415065 (Version 1)
Quarter: 2014Q2

REPORT INFORMATION
  Report Type: Spontaneous
  Country: US (occurrence: None)
  Receive Date: 20140604
  Receipt Date: 20140604
  Transmission Date: 20141212
  Serious: No
  Sender: FDA-Public Use
  Company Number: 163-POMAL-14024045

PATIENT
  Age: 74 Year
  Sex: Female

DRUGS (2)
  1. POMALYST (POMALIDOMIDE) (2 MILLIGRAM, CAPSULES) [Suspect]
     Indication: PLASMA CELL MYELOMA
     Dosage: 21 IN 28 D
     Route: 048
     Dates: start: 20140210, end: 20140215
  2. DEXAMETHASONE [Concomitant]

REACTIONS (5)
  - Gait disturbance [None]
  - Insomnia [None]
  - Dyspnoea [None]
  - Fatigue [None]
  - Nausea [None]
